FAERS Safety Report 11813971 (Version 5)
Quarter: 2016Q1

REPORT INFORMATION
  Report Type: Report from Study
  Country: US (occurrence: US)
  Receive Date: 20151209
  Receipt Date: 20160329
  Transmission Date: 20160525
  Serious: Yes (Life-Threatening, Hospitalization)
  Sender: FDA-Public Use
  Company Number: US-JNJFOC-20151204859

PATIENT
  Age: 83 Year
  Sex: Female
  Weight: 66.23 kg

DRUGS (7)
  1. DARATUMUMAB [Suspect]
     Active Substance: DARATUMUMAB
     Indication: PLASMA CELL MYELOMA
     Dosage: CYCLE 1 D1,  D8, D15, D22. CYCLE 2 D1,  D8, D15, D22. CYCLE 3 D1
     Route: 042
     Dates: start: 20150901, end: 20151125
  2. LENALIDOMIDE [Suspect]
     Active Substance: LENALIDOMIDE
     Indication: PLASMA CELL MYELOMA
     Dosage: DOSE REDUCED (DATE AND STRENGTH UNSPECIFIED) DUE TO CREATININE CLEARANCE.
     Route: 048
     Dates: start: 20151223
  3. LENALIDOMIDE [Suspect]
     Active Substance: LENALIDOMIDE
     Indication: PLASMA CELL MYELOMA
     Dosage: ONE TABLET DAILY DAYS 1-21 OF 28 DAYS
     Route: 048
     Dates: start: 20150901, end: 20151124
  4. DEXAMETHASONE. [Suspect]
     Active Substance: DEXAMETHASONE
     Indication: PLASMA CELL MYELOMA
     Dosage: CYCLE 1 D1,  D8, D15, D22. CYCLE 2 D1,  D8, D15, D22. CYCLE 3 D1
     Route: 048
     Dates: start: 20150901
  5. DARATUMUMAB [Suspect]
     Active Substance: DARATUMUMAB
     Route: 042
  6. DEXAMETHASONE. [Suspect]
     Active Substance: DEXAMETHASONE
     Indication: PLASMA CELL MYELOMA
     Dosage: DOSE FURTHER REDUCED (STRENGTH UNSPECIFIED) AS ELDERLY SUBJECT COULD NOT TOLERATE HIGHER DOSE
     Route: 048
     Dates: start: 20160120
  7. DEXAMETHASONE. [Suspect]
     Active Substance: DEXAMETHASONE
     Indication: PLASMA CELL MYELOMA
     Dosage: DOSE REDUCED DUE TO CREATININE CLEARANCE BETWEEN 30-60
     Route: 048
     Dates: start: 20151223

REACTIONS (1)
  - Cerebrovascular accident [Recovered/Resolved]

NARRATIVE: CASE EVENT DATE: 20151129
